FAERS Safety Report 6356614-5 (Version None)
Quarter: 2009Q3

REPORT INFORMATION
  Report Type: 
  Country: None (occurrence: None)
  Receive Date: 20090910
  Receipt Date: 20090910
  Transmission Date: 20100115
  Serious: No
  Sender: FDA-Public Use
  Company Number: None

PATIENT
  Age: 58 Year
  Sex: Female
  Weight: 56.6996 kg

DRUGS (1)
  1. FLONASE [Suspect]
     Indication: HEADACHE
     Dates: start: 20081222, end: 20090106

REACTIONS (1)
  - ANOSMIA [None]
